FAERS Safety Report 18347315 (Version 2)
Quarter: 2021Q1

REPORT INFORMATION
  Report Type: Report from Study
  Country: JP (occurrence: JP)
  Receive Date: 20201005
  Receipt Date: 20210111
  Transmission Date: 20210419
  Serious: Yes (Death, Hospitalization)
  Sender: FDA-Public Use
  Company Number: JP-ROCHE-2589146

PATIENT
  Age: 73 Year
  Sex: Female
  Weight: 41 kg

DRUGS (30)
  1. BEVACIZUMAB. [Suspect]
     Active Substance: BEVACIZUMAB
     Dosage: 15MG/KG
     Route: 041
     Dates: start: 20200702, end: 20200702
  2. LANSOPRAZOLE OD [Concomitant]
     Active Substance: LANSOPRAZOLE
     Route: 048
     Dates: start: 20200427, end: 20200926
  3. ATEZOLIZUMAB. [Suspect]
     Active Substance: ATEZOLIZUMAB
     Route: 041
     Dates: start: 20200917
  4. BEVACIZUMAB. [Suspect]
     Active Substance: BEVACIZUMAB
     Dosage: 15MG/KG
     Route: 041
     Dates: start: 20200611, end: 20200611
  5. CARBOPLATIN. [Suspect]
     Active Substance: CARBOPLATIN
     Dosage: AUC5
     Route: 041
     Dates: start: 20200611, end: 20200611
  6. LOXOPROFEN SODIUM HYDRATE [Concomitant]
     Active Substance: LOXOPROFEN SODIUM DIHYDRATE
     Indication: PAIN
     Route: 048
     Dates: start: 20190406, end: 20200423
  7. LOXOPROFEN SODIUM HYDRATE [Concomitant]
     Active Substance: LOXOPROFEN SODIUM DIHYDRATE
     Route: 048
     Dates: start: 20200427, end: 20200926
  8. LANSOPRAZOLE OD [Concomitant]
     Active Substance: LANSOPRAZOLE
     Indication: PROPHYLAXIS AGAINST GASTROINTESTINAL ULCER
     Route: 048
     Dates: start: 20190406, end: 20200423
  9. ATEZOLIZUMAB. [Suspect]
     Active Substance: ATEZOLIZUMAB
     Route: 041
     Dates: start: 20200514, end: 20200514
  10. ALIMTA [Suspect]
     Active Substance: PEMETREXED DISODIUM
     Dosage: 350 MG/M2
     Route: 041
     Dates: start: 20200702, end: 20200702
  11. DIACORT [Suspect]
     Active Substance: DIFLORASONE DIACETATE
     Indication: RASH
     Dosage: SINGLE USE AND PROPER QUANTITY
     Route: 061
     Dates: start: 20200416
  12. HIRUDOID [Concomitant]
     Active Substance: GLYCOSAMINOGLYCANS
     Indication: DRY SKIN PROPHYLAXIS
     Route: 003
     Dates: start: 20200521, end: 20200928
  13. BEVACIZUMAB. [Suspect]
     Active Substance: BEVACIZUMAB
     Dosage: 15MG/KG
     Route: 041
     Dates: start: 20200514, end: 20200514
  14. ALIMTA [Suspect]
     Active Substance: PEMETREXED DISODIUM
     Indication: LUNG ADENOCARCINOMA
     Dosage: 500MG/M2
     Route: 041
     Dates: start: 20200402, end: 20200402
  15. ALIMTA [Suspect]
     Active Substance: PEMETREXED DISODIUM
     Dosage: 500MG/M2
     Route: 041
     Dates: start: 20200514, end: 20200514
  16. ATEZOLIZUMAB. [Suspect]
     Active Substance: ATEZOLIZUMAB
     Indication: LUNG ADENOCARCINOMA
     Dosage: DATE AND TIME OF LAST ADMINISTRATION: 02/APR/2020
     Route: 041
     Dates: start: 20200402, end: 20200402
  17. ATEZOLIZUMAB. [Suspect]
     Active Substance: ATEZOLIZUMAB
     Route: 041
     Dates: start: 20200611, end: 20200611
  18. ATEZOLIZUMAB. [Suspect]
     Active Substance: ATEZOLIZUMAB
     Route: 041
     Dates: start: 20200806, end: 20200917
  19. BEVACIZUMAB. [Suspect]
     Active Substance: BEVACIZUMAB
     Indication: LUNG ADENOCARCINOMA
     Dosage: 15MG/KG
     Route: 041
     Dates: start: 20200402, end: 20200402
  20. BEVACIZUMAB. [Suspect]
     Active Substance: BEVACIZUMAB
     Dosage: 15MG/KG
     Route: 041
     Dates: start: 20200917
  21. CARBOPLATIN. [Suspect]
     Active Substance: CARBOPLATIN
     Indication: LUNG ADENOCARCINOMA
     Dosage: AUC5
     Route: 041
     Dates: start: 20200402, end: 20200402
  22. ZOSYN [Suspect]
     Active Substance: PIPERACILLIN SODIUM\TAZOBACTAM SODIUM
     Indication: FEBRILE NEUTROPENIA
     Route: 042
     Dates: start: 20200416
  23. REBAMIPIDE [Concomitant]
     Active Substance: REBAMIPIDE
     Route: 048
     Dates: start: 20200427, end: 20200926
  24. ATEZOLIZUMAB. [Suspect]
     Active Substance: ATEZOLIZUMAB
     Route: 041
     Dates: start: 20200702, end: 20200702
  25. BEVACIZUMAB. [Suspect]
     Active Substance: BEVACIZUMAB
     Dosage: 15MG/KG
     Route: 041
     Dates: start: 20200806, end: 20200917
  26. ALIMTA [Suspect]
     Active Substance: PEMETREXED DISODIUM
     Dosage: 500MG/M2
     Route: 041
     Dates: start: 20200611, end: 20200611
  27. CARBOPLATIN. [Suspect]
     Active Substance: CARBOPLATIN
     Dosage: AUC5
     Route: 041
     Dates: start: 20200514, end: 20200514
  28. ANTEBATE [Suspect]
     Active Substance: BETAMETHASONE DIPROPIONATE
     Indication: RASH
     Dosage: SINGLE USE AND PROPER QUANTITY
     Route: 061
     Dates: start: 20200416
  29. REBAMIPIDE [Concomitant]
     Active Substance: REBAMIPIDE
     Indication: PROPHYLAXIS
     Route: 048
     Dates: start: 20190406, end: 20200423
  30. ZYPREXA [Concomitant]
     Active Substance: OLANZAPINE
     Indication: DECREASED APPETITE
     Route: 048
     Dates: start: 20200406

REACTIONS (3)
  - Pneumonia [Recovered/Resolved]
  - Pneumonitis [Fatal]
  - Febrile neutropenia [Recovered/Resolved]

NARRATIVE: CASE EVENT DATE: 20200409
